FAERS Safety Report 10419242 (Version 1)
Quarter: 2014Q3

REPORT INFORMATION
  Report Type: Spontaneous
  Country: US (occurrence: US)
  Receive Date: 20140829
  Receipt Date: 20140829
  Transmission Date: 20150326
  Serious: No
  Sender: FDA-Public Use
  Company Number: US-009507513-1408USA016514

PATIENT
  Sex: Female

DRUGS (2)
  1. GYNE-LOTRIMIN [Suspect]
     Active Substance: CLOTRIMAZOLE
     Indication: SKIN IRRITATION
  2. GYNE-LOTRIMIN [Suspect]
     Active Substance: CLOTRIMAZOLE
     Indication: PRURITUS
     Dosage: UNK, UNKNOWN
     Route: 067

REACTIONS (1)
  - Drug ineffective [Unknown]
